FAERS Safety Report 18959507 (Version 1)
Quarter: 2021Q1

REPORT INFORMATION
  Report Type: Spontaneous
  Country: SN (occurrence: SN)
  Receive Date: 20210302
  Receipt Date: 20210302
  Transmission Date: 20210420
  Serious: Yes (Congenital Anomaly)
  Sender: FDA-Public Use
  Company Number: ALC2021SN001384

PATIENT
  Age: 35 Year
  Sex: Female

DRUGS (2)
  1. ORCHAZID [Suspect]
     Active Substance: KETOTIFEN FUMARATE
     Indication: PRODUCT USED FOR UNKNOWN INDICATION
     Route: 065
  2. OPATANOL [Suspect]
     Active Substance: OLOPATADINE
     Indication: EYE ALLERGY
     Dosage: 1 DRP, BID
     Route: 065
     Dates: start: 202002

REACTIONS (2)
  - Dry eye [Unknown]
  - Eye pain [Not Recovered/Not Resolved]
